FAERS Safety Report 10038052 (Version 2)
Quarter: 2014Q2

REPORT INFORMATION
  Report Type: Spontaneous
  Country: US (occurrence: US)
  Receive Date: 20140326
  Receipt Date: 20140402
  Transmission Date: 20141212
  Serious: Yes (Hospitalization)
  Sender: FDA-Public Use
  Company Number: US-UCBSA-114884

PATIENT
  Age: 27 Year
  Sex: Female

DRUGS (2)
  1. CIMZIA [Suspect]
     Indication: CROHN^S DISEASE
     Dates: start: 20140206
  2. CIMZIA [Suspect]
     Indication: CROHN^S DISEASE
     Dates: start: 20131115

REACTIONS (1)
  - Pyrexia [Not Recovered/Not Resolved]
